FAERS Safety Report 4546479-6 (Version None)
Quarter: 2005Q1

REPORT INFORMATION
  Report Type: 
  Country: None (occurrence: None)
  Receive Date: 20050103
  Receipt Date: 20041222
  Transmission Date: 20050727
  Serious: Yes (Hospitalization, Other)
  Sender: FDA-Public Use
  Company Number: 2004111469

PATIENT
  Age: 25 Year
  Sex: Female

DRUGS (2)
  1. DEPO-PROVERA [Suspect]
     Indication: CONTRACEPTION
     Dosage: 150 MG (150 MG, 1ST INJECTION, EVERY 3 MONTHS), INTRAMUSCULAR, SEE IMAGE
     Route: 030
     Dates: start: 20040722, end: 20040722
  2. DEPO-PROVERA [Suspect]
     Indication: CONTRACEPTION
     Dosage: 150 MG (150 MG, 1ST INJECTION, EVERY 3 MONTHS), INTRAMUSCULAR, SEE IMAGE
     Route: 030
     Dates: start: 20041022, end: 20041022

REACTIONS (7)
  - ABDOMINAL PAIN [None]
  - ABORTED PREGNANCY [None]
  - DIZZINESS [None]
  - DRUG EXPOSURE DURING PREGNANCY [None]
  - MALAISE [None]
  - VAGINAL HAEMORRHAGE [None]
  - VOMITING [None]
